FAERS Safety Report 23489540 (Version 2)
Quarter: 2024Q1

REPORT INFORMATION
  Report Type: Report from Study
  Country: US (occurrence: US)
  Receive Date: 20240206
  Receipt Date: 20240212
  Transmission Date: 20240409
  Serious: Yes (Hospitalization)
  Sender: FDA-Public Use
  Company Number: US-JNJFOC-20240178161

PATIENT
  Age: 61 Year
  Sex: Male
  Weight: 78.996 kg

DRUGS (18)
  1. DARZALEX [Suspect]
     Active Substance: DARATUMUMAB
     Indication: Plasma cell myeloma
     Route: 058
     Dates: start: 20231002, end: 20231002
  2. DARZALEX [Suspect]
     Active Substance: DARATUMUMAB
     Route: 058
     Dates: start: 20231010, end: 20231010
  3. DARZALEX [Suspect]
     Active Substance: DARATUMUMAB
     Route: 058
     Dates: start: 20231106, end: 20231106
  4. ELRANATAMAB [Suspect]
     Active Substance: ELRANATAMAB
     Indication: Plasma cell myeloma
     Route: 058
     Dates: start: 20230803, end: 20230803
  5. ELRANATAMAB [Suspect]
     Active Substance: ELRANATAMAB
     Route: 058
     Dates: start: 20230807, end: 20230807
  6. ELRANATAMAB [Suspect]
     Active Substance: ELRANATAMAB
     Route: 058
     Dates: start: 20231106, end: 20231106
  7. ELRANATAMAB [Suspect]
     Active Substance: ELRANATAMAB
     Route: 058
     Dates: start: 20231113
  8. NAPROXEN [Concomitant]
     Active Substance: NAPROXEN
     Indication: Musculoskeletal pain
     Route: 048
     Dates: start: 201902
  9. NAPROXEN [Concomitant]
     Active Substance: NAPROXEN
     Indication: Polyneuropathy
  10. ASPIRIN [Concomitant]
     Active Substance: ASPIRIN
     Indication: Thrombosis prophylaxis
     Route: 048
     Dates: start: 202001
  11. OMEPRAZOLE [Concomitant]
     Active Substance: OMEPRAZOLE
     Indication: Prophylaxis
     Route: 048
     Dates: start: 201902
  12. NATECAL D FLASH [Concomitant]
     Indication: Osteoporosis prophylaxis
     Route: 048
     Dates: start: 2019
  13. FOLIC ACID [Concomitant]
     Active Substance: FOLIC ACID
     Indication: Anaemia prophylaxis
     Route: 048
     Dates: start: 20231008
  14. SODIUM PHOSPHATE, MONOBASIC [Concomitant]
     Active Substance: SODIUM PHOSPHATE, MONOBASIC
     Indication: Prophylaxis
     Route: 048
     Dates: start: 20231023
  15. SULFAMETHOXAZOLE\TRIMETHOPRIM [Concomitant]
     Active Substance: SULFAMETHOXAZOLE\TRIMETHOPRIM
     Indication: Infection prophylaxis
     Route: 048
     Dates: start: 20230808
  16. ACYCLOVIR [Concomitant]
     Active Substance: ACYCLOVIR
     Indication: Infection prophylaxis
     Route: 048
     Dates: start: 20230808
  17. PREDNISONE [Concomitant]
     Active Substance: PREDNISONE
     Indication: Upper respiratory tract infection
     Route: 048
     Dates: start: 20231113, end: 20231118
  18. AZITHROMYCIN [Concomitant]
     Active Substance: AZITHROMYCIN
     Indication: Upper respiratory tract infection
     Route: 048
     Dates: start: 20231113, end: 20231118

REACTIONS (1)
  - Pneumonia viral [Recovered/Resolved]

NARRATIVE: CASE EVENT DATE: 20231112
